FAERS Safety Report 14107250 (Version 1)
Quarter: 2017Q4

REPORT INFORMATION
  Report Type: Spontaneous
  Country: CA (occurrence: CA)
  Receive Date: 20171019
  Receipt Date: 20171019
  Transmission Date: 20180321
  Serious: Yes (Other)
  Sender: FDA-Public Use
  Company Number: CA-AMGEN-CANSP2017156412

PATIENT
  Age: 71 Year
  Sex: Female

DRUGS (1)
  1. PROLIA [Suspect]
     Active Substance: DENOSUMAB
     Indication: PRODUCT USED FOR UNKNOWN INDICATION
     Dosage: UNK
     Route: 065
     Dates: start: 20170411

REACTIONS (8)
  - Rhinorrhoea [Unknown]
  - Restless legs syndrome [Unknown]
  - Hypersensitivity [Unknown]
  - Muscle spasms [Unknown]
  - Retinal vein occlusion [Unknown]
  - Arthralgia [Unknown]
  - Sneezing [Unknown]
  - Back pain [Unknown]

NARRATIVE: CASE EVENT DATE: 2017
